FAERS Safety Report 16601146 (Version 2)
Quarter: 2021Q2

REPORT INFORMATION
  Report Type: Spontaneous
  Country: US (occurrence: US)
  Receive Date: 20190719
  Receipt Date: 20210622
  Transmission Date: 20210716
  Serious: Yes (Disabling)
  Sender: FDA-Public Use
  Company Number: US-TEVA-2019-US-1080546

PATIENT
  Age: 62 Year
  Sex: Female

DRUGS (9)
  1. VALSARTAN RANBAXY [Suspect]
     Active Substance: VALSARTAN
     Indication: HYPERTENSION
     Dosage: IN ?2014
     Route: 048
  2. AMLODIPINE [Concomitant]
     Active Substance: AMLODIPINE BESYLATE
     Indication: HYPERTENSION
  3. VALSARTAN SANDOZ [Suspect]
     Active Substance: VALSARTAN
     Indication: HYPERTENSION
     Dosage: 240 MILLIGRAM DAILY;
     Route: 048
     Dates: start: 20150111, end: 20160531
  4. LAMOTRIGINE. [Concomitant]
     Active Substance: LAMOTRIGINE
     Indication: ANXIETY
     Dosage: 150MG/2 PER DAY
     Dates: start: 2010
  5. ZOLOFT [Concomitant]
     Active Substance: SERTRALINE HYDROCHLORIDE
     Indication: DEPRESSION
     Dosage: 50MG/DAY
     Dates: start: 2000
  6. VALSARTAN MYLAN [Suspect]
     Active Substance: VALSARTAN
     Indication: HYPERTENSION
     Dosage: 240 MILLIGRAM DAILY;
     Route: 048
     Dates: start: 20160719, end: 20180824
  7. DIOVAN [Suspect]
     Active Substance: VALSARTAN
     Indication: HYPERTENSION
     Dosage: 240 MILLIGRAM DAILY;
     Route: 048
  8. VALSARTAN. [Suspect]
     Active Substance: VALSARTAN
     Indication: HYPERTENSION
     Dosage: 240 MILLIGRAM DAILY;
     Route: 048
     Dates: start: 20140411, end: 20150111
  9. LORAZEPAM. [Concomitant]
     Active Substance: LORAZEPAM
     Indication: ANXIETY
     Dosage: 1MG/4 PER DAY
     Dates: start: 2000

REACTIONS (2)
  - Hepatic steatosis [Unknown]
  - Recalled product administered [Unknown]

NARRATIVE: CASE EVENT DATE: 20161017
